FAERS Safety Report 12200743 (Version 1)
Quarter: 2016Q1

REPORT INFORMATION
  Report Type: Spontaneous
  Country: US (occurrence: US)
  Receive Date: 20160322
  Receipt Date: 20160322
  Transmission Date: 20160526
  Serious: Yes (Hospitalization, Other)
  Sender: FDA-Public Use
  Company Number: US-GLAXOSMITHKLINE-US2016039830

PATIENT
  Sex: Female

DRUGS (8)
  1. ELIQUIS [Concomitant]
     Active Substance: APIXABAN
  2. METOPROLOL. [Concomitant]
     Active Substance: METOPROLOL
  3. PROPAFENONE HYDROCHLORIDE SR [Suspect]
     Active Substance: PROPAFENONE HYDROCHLORIDE
     Indication: ATRIAL FIBRILLATION
     Route: 048
  4. METAMUCIL [Concomitant]
     Active Substance: PLANTAGO SEED
  5. RYTHMOL SR [Suspect]
     Active Substance: PROPAFENONE HYDROCHLORIDE
     Indication: ATRIAL FIBRILLATION
  6. DEXILANT [Concomitant]
     Active Substance: DEXLANSOPRAZOLE
  7. SIMVASTATIN. [Concomitant]
     Active Substance: SIMVASTATIN
  8. SERTRALINE [Concomitant]
     Active Substance: SERTRALINE HYDROCHLORIDE

REACTIONS (5)
  - Cardioversion [Unknown]
  - Product substitution issue [Unknown]
  - Atrial fibrillation [Unknown]
  - Cardiac ablation [Unknown]
  - Drug ineffective [Unknown]
